FAERS Safety Report 17901615 (Version 1)
Quarter: 2020Q2

REPORT INFORMATION
  Report Type: Spontaneous
  Country: KR (occurrence: KR)
  Receive Date: 20200616
  Receipt Date: 20200616
  Transmission Date: 20200714
  Serious: Yes (Hospitalization)
  Sender: FDA-Public Use
  Company Number: KR-JNJFOC-20200611760

PATIENT
  Age: 49 Year
  Sex: Male

DRUGS (5)
  1. INVEGA [Suspect]
     Active Substance: PALIPERIDONE
     Indication: HALLUCINATION, AUDITORY
     Route: 048
  2. LORAZEPAM. [Concomitant]
     Active Substance: LORAZEPAM
     Dosage: 1MG BID
  3. INVEGA [Suspect]
     Active Substance: PALIPERIDONE
     Indication: PERSECUTORY DELUSION
  4. QUETIAPINE. [Concomitant]
     Active Substance: QUETIAPINE
     Dosage: 400MG QD P PC
     Route: 048
  5. DIVALPROATE [Concomitant]
     Active Substance: DIVALPROEX SODIUM
     Dosage: 300 MG BID

REACTIONS (7)
  - Persecutory delusion [Recovered/Resolved]
  - Somnolence [Recovered/Resolved]
  - Hallucination, auditory [Recovered/Resolved]
  - Hospitalisation [Unknown]
  - Treatment noncompliance [Unknown]
  - Off label use [Unknown]
  - Inappropriate schedule of product administration [Unknown]
